FAERS Safety Report 19444215 (Version 6)
Quarter: 2025Q1

REPORT INFORMATION
  Report Type: Report from Study
  Country: US (occurrence: US)
  Receive Date: 20210621
  Receipt Date: 20250225
  Transmission Date: 20250409
  Serious: Yes (Other)
  Sender: BAUSCH AND LOMB
  Company Number: US-BAUSCH-BL-2021-021739

PATIENT
  Age: 66 Year
  Sex: Female

DRUGS (1)
  1. XIFAXAN [Suspect]
     Active Substance: RIFAXIMIN
     Indication: Hepatic cirrhosis
     Route: 048

REACTIONS (8)
  - Hernia [Recovered/Resolved]
  - Procedural pain [Recovered/Resolved]
  - Ammonia increased [Recovered/Resolved]
  - Feeling abnormal [Recovered/Resolved]
  - Epistaxis [Recovered/Resolved]
  - Sinus disorder [Recovered/Resolved]
  - Headache [Recovered/Resolved]
  - Product use issue [Unknown]

NARRATIVE: CASE EVENT DATE: 20210601
